FAERS Safety Report 6191504-2 (Version None)
Quarter: 2009Q2

REPORT INFORMATION
  Report Type: 
  Country: None (occurrence: None)
  Receive Date: 20090515
  Receipt Date: 20090511
  Transmission Date: 20091009
  Serious: Yes (Other)
  Sender: FDA-Public Use
  Company Number: US-JNJFOC-20090500825

PATIENT
  Sex: Female
  Weight: 54.43 kg

DRUGS (10)
  1. REMICADE [Suspect]
     Route: 042
  2. REMICADE [Suspect]
     Route: 042
  3. REMICADE [Suspect]
     Route: 042
  4. REMICADE [Suspect]
     Route: 042
  5. REMICADE [Suspect]
     Route: 042
  6. REMICADE [Suspect]
     Indication: RHEUMATOID ARTHRITIS
     Route: 042
  7. METHOTREXATE [Concomitant]
     Indication: RHEUMATOID ARTHRITIS
     Dosage: RECENTLY STOPPED
  8. BENICAR [Concomitant]
     Indication: ATRIAL FIBRILLATION
  9. ASPIRIN [Concomitant]
     Indication: ATRIAL FIBRILLATION
  10. ACTONEL [Concomitant]

REACTIONS (1)
  - MYELODYSPLASTIC SYNDROME [None]
